FAERS Safety Report 9355255 (Version 1)
Quarter: 2013Q2

REPORT INFORMATION
  Report Type: Spontaneous
  Country: US (occurrence: None)
  Receive Date: 20130618
  Receipt Date: 20130618
  Transmission Date: 20140414
  Serious: Yes (Life-Threatening)
  Sender: FDA-Public Use
  Company Number: None

PATIENT
  Age: 53 Year
  Sex: Male
  Weight: 125 kg

DRUGS (2)
  1. PRADAXA [Suspect]
     Indication: ATRIAL FIBRILLATION
     Route: 048
     Dates: start: 20130323, end: 20130609
  2. PRADAXA [Suspect]
     Indication: CEREBROVASCULAR ACCIDENT PROPHYLAXIS
     Route: 048
     Dates: start: 20130323, end: 20130609

REACTIONS (8)
  - Pneumonia [None]
  - Chest pain [None]
  - Respiratory arrest [None]
  - Pulmonary embolism [None]
  - Haemothorax [None]
  - Hypercoagulation [None]
  - Thrombosis [None]
  - Pulmonary infarction [None]
